FAERS Safety Report 9780773 (Version 5)
Quarter: 2014Q1

REPORT INFORMATION
  Report Type: Spontaneous
  Country: CA (occurrence: CA)
  Receive Date: 20131224
  Receipt Date: 20140227
  Transmission Date: 20141002
  Serious: Yes (Hospitalization)
  Sender: FDA-Public Use
  Company Number: CA-ROCHE-1320329

PATIENT
  Sex: Female

DRUGS (7)
  1. HERCEPTIN [Suspect]
     Indication: BREAST CANCER METASTATIC
     Route: 042
     Dates: start: 20090818, end: 201312
  2. TAXOL [Suspect]
     Indication: BREAST CANCER METASTATIC
     Route: 065
  3. VINORELBINE [Suspect]
     Indication: BREAST CANCER METASTATIC
     Route: 065
  4. DEXAMETHASONE [Concomitant]
     Dosage: TAPERING DOSE
     Route: 065
  5. CITALOPRAM [Concomitant]
  6. ATIVAN [Concomitant]
  7. ZOPICLONE [Concomitant]

REACTIONS (7)
  - Pneumonia [Unknown]
  - Disease progression [Not Recovered/Not Resolved]
  - Respiratory disorder [Unknown]
  - Dyspnoea [Unknown]
  - Oropharyngeal pain [Unknown]
  - Lung infection [Recovering/Resolving]
  - Therapy responder [Unknown]
